FAERS Safety Report 20019523 (Version 1)
Quarter: 2021Q4

REPORT INFORMATION
  Report Type: Spontaneous
  Country: JP (occurrence: JP)
  Receive Date: 20211101
  Receipt Date: 20211101
  Transmission Date: 20220304
  Serious: Yes (Death, Other)
  Sender: FDA-Public Use
  Company Number: JP-VIIVHC-JP2021JPN224351AA

PATIENT
  Age: 56 Year

DRUGS (4)
  1. EPIVIR [Suspect]
     Active Substance: LAMIVUDINE
     Dosage: UNK
  2. ZIAGEN [Suspect]
     Active Substance: ABACAVIR SULFATE
     Dosage: UNK
  3. TIVICAY [Suspect]
     Active Substance: DOLUTEGRAVIR SODIUM
     Dosage: UNK
  4. KALETRA [Concomitant]
     Active Substance: LOPINAVIR\RITONAVIR
     Dosage: UNK

REACTIONS (4)
  - Death [Fatal]
  - Chronic hepatitis C [Unknown]
  - Haemophilia [Unknown]
  - Blood creatinine increased [Unknown]
